FAERS Safety Report 13351752 (Version 1)
Quarter: 2017Q1

REPORT INFORMATION
  Report Type: Spontaneous
  Country: US (occurrence: US)
  Receive Date: 20170320
  Receipt Date: 20170320
  Transmission Date: 20170429
  Serious: Yes (Death)
  Sender: FDA-Public Use
  Company Number: None

PATIENT
  Age: 70 Year
  Sex: Female
  Weight: 72.58 kg

DRUGS (5)
  1. HYOSCYAMINE 0.125MG ORAL DIS TABS [Suspect]
     Active Substance: HYOSCYAMINE
     Indication: INCREASED UPPER AIRWAY SECRETION
     Dosage: FREQUENCY: 6
     Route: 048
     Dates: start: 20160809, end: 20160811
  2. OXEGEN [Concomitant]
  3. MIDODRINE [Concomitant]
     Active Substance: MIDODRINE
  4. MORPHINE [Concomitant]
     Active Substance: MORPHINE
  5. SPERALACTONE [Concomitant]

REACTIONS (1)
  - Coma [None]

NARRATIVE: CASE EVENT DATE: 20160810
